FAERS Safety Report 7812167-3 (Version None)
Quarter: 2011Q4

REPORT INFORMATION
  Report Type: 
  Country: None (occurrence: None)
  Receive Date: 20111013
  Receipt Date: 20110802
  Transmission Date: 20120403
  Serious: Yes (Hospitalization)
  Sender: FDA-Public Use
  Company Number: PHEH2011US06185

PATIENT
  Age: 3 Year
  Sex: Male
  Weight: 17.234 kg

DRUGS (3)
  1. SYNAGIS [Concomitant]
  2. TOBI [Suspect]
     Dosage: 300 MG, BID VIA NEBULIZER IN A CYCLE OF 28 DAYS ON AN D28 DAYS OFF
     Dates: start: 20100205
  3. PULMOZYME [Concomitant]

REACTIONS (1)
  - PNEUMONIA [None]
